FAERS Safety Report 12367260 (Version 1)
Quarter: 2016Q2

REPORT INFORMATION
  Report Type: Spontaneous
  Country: IE (occurrence: IE)
  Receive Date: 20160513
  Receipt Date: 20160513
  Transmission Date: 20160815
  Serious: Yes (Disabling)
  Sender: FDA-Public Use
  Company Number: IE-KADMON PHARMACEUTICALS, LLC-KAD201605-001783

PATIENT
  Age: 58 Year
  Sex: Male

DRUGS (9)
  1. SOVALDI [Suspect]
     Active Substance: SOFOSBUVIR
     Indication: HEPATITIS
     Dosage: FILM-COATED TABLET
     Route: 048
     Dates: start: 20160408
  2. LAMIVUDINE. [Concomitant]
     Active Substance: LAMIVUDINE
  3. AMLODIPINE [Concomitant]
     Active Substance: AMLODIPINE BESYLATE
  4. RIBAVIRIN. [Suspect]
     Active Substance: RIBAVIRIN
     Indication: HEPATITIS
     Dosage: FILM-COATED TABLET, 400 MG IN THE MORNING; 200 MG IN THE EVENING (200 UNKNOWN)
     Route: 048
     Dates: start: 20160408
  5. CELLCEPT [Suspect]
     Active Substance: MYCOPHENOLATE MOFETIL\MYCOPHENOLATE MOFETIL HYDROCHLORIDE
     Indication: TRANSPLANT
     Dosage: TABLET
     Route: 048
     Dates: start: 20160408
  6. PROGRAF [Concomitant]
     Active Substance: TACROLIMUS\TACROLIMUS ANHYDROUS
     Dosage: CAPSULE, HARD
  7. OMEPRAZOLE. [Concomitant]
     Active Substance: OMEPRAZOLE
     Dosage: FILM-COATED TABLET
  8. INSUMAN [Concomitant]
     Active Substance: INSULIN HUMAN
     Dosage: SUSPENSION FOR INJECTION
  9. DAKLINZA [Suspect]
     Active Substance: DACLATASVIR
     Indication: HEPATITIS
     Dosage: FILM-COATED TABLET
     Route: 048
     Dates: start: 20160408

REACTIONS (2)
  - Facial paralysis [Not Recovered/Not Resolved]
  - Pain [Not Recovered/Not Resolved]

NARRATIVE: CASE EVENT DATE: 20160416
